FAERS Safety Report 21571901 (Version 1)
Quarter: 2022Q4

REPORT INFORMATION
  Report Type: Spontaneous
  Country: US (occurrence: None)
  Receive Date: 20221108
  Receipt Date: 20221108
  Transmission Date: 20230113
  Serious: Yes (Hospitalization)
  Sender: FDA-Public Use
  Company Number: None

PATIENT
  Age: 51 Year
  Sex: Female
  Weight: 66.4 kg

DRUGS (3)
  1. FLUOROURACIL [Suspect]
     Active Substance: FLUOROURACIL
     Dates: end: 20221004
  2. LEUCOVORIN CALCIUM [Suspect]
     Active Substance: LEUCOVORIN CALCIUM
     Dates: end: 20221004
  3. ELOXATIN [Suspect]
     Active Substance: OXALIPLATIN
     Dates: end: 20221004

REACTIONS (6)
  - Peripheral sensory neuropathy [None]
  - COVID-19 [None]
  - Paraesthesia [None]
  - Pain [None]
  - Therapy change [None]
  - Burning sensation [None]

NARRATIVE: CASE EVENT DATE: 20221011
